FAERS Safety Report 8438182-7 (Version None)
Quarter: 2012Q2

REPORT INFORMATION
  Report Type: 
  Country: None (occurrence: None)
  Receive Date: 20120614
  Receipt Date: 20120604
  Transmission Date: 20120825
  Serious: No
  Sender: FDA-Public Use
  Company Number: US-ASTRAZENECA-2012SE37482

PATIENT
  Age: 57 Year
  Sex: Female

DRUGS (1)
  1. PRILOSEC [Suspect]
     Route: 048

REACTIONS (2)
  - ADVERSE EVENT [None]
  - DRUG INEFFECTIVE [None]
